FAERS Safety Report 7402708-2 (Version None)
Quarter: 2011Q1

REPORT INFORMATION
  Report Type: 
  Country: None (occurrence: None)
  Receive Date: 20110330
  Receipt Date: 20110324
  Transmission Date: 20110831
  Serious: Yes (Life-Threatening, Hospitalization)
  Sender: FDA-Public Use
  Company Number: 1000018592

PATIENT
  Age: 80 Year
  Sex: Male

DRUGS (5)
  1. ALLOPURINOL [Concomitant]
  2. ONBREZ (INDACATEROL) (INDACATEROL) [Concomitant]
  3. ROFLUMILAST (ROFLUMILAST) (TABLETS) [Suspect]
     Indication: CHRONIC OBSTRUCTIVE PULMONARY DISEASE
     Dosage: 500 MCG (500 MCG,1 IN 1 D),ORAL
     Route: 048
     Dates: start: 20100903, end: 20100101
  4. RAMIPRIL [Concomitant]
  5. SPIRIVA (TIOTROPIUM BROMIDE) (TIOTROPIUM BROMIDE) [Concomitant]

REACTIONS (2)
  - ARTHRALGIA [None]
  - GLAUCOMA [None]
